FAERS Safety Report 26023410 (Version 1)
Quarter: 2025Q4

REPORT INFORMATION
  Report Type: Spontaneous
  Country: US (occurrence: US)
  Receive Date: 20251110
  Receipt Date: 20251110
  Transmission Date: 20260118
  Serious: No
  Sender: MERCK SHARP & DOHME LLC
  Company Number: US-009507513-2340952

PATIENT
  Age: 17 Year
  Sex: Female

DRUGS (3)
  1. TEMOZOLOMIDE [Suspect]
     Active Substance: TEMOZOLOMIDE
     Indication: Malignant glioma
  2. BEVACIZUMAB [Concomitant]
     Active Substance: BEVACIZUMAB
     Indication: Malignant glioma
  3. IRINOTECAN [Concomitant]
     Active Substance: IRINOTECAN
     Indication: Malignant glioma

REACTIONS (1)
  - Product use in unapproved indication [Unknown]
